FAERS Safety Report 8784895 (Version 1)
Quarter: 2012Q4

REPORT INFORMATION
  Report Type: 
  Country: US (occurrence: US)
  Receive Date: 20120914
  Receipt Date: 20120914
  Transmission Date: 20130627
  Serious: Yes (Hospitalization, Other)
  Sender: FDA-Public Use
  Company Number: US-UCBSA-065311

PATIENT
  Age: 69 Year
  Sex: Female
  Weight: 80.7 kg

DRUGS (6)
  1. CIMZIA [Suspect]
     Indication: RHEUMATOID ARTHRITIS
     Dosage: 400 MU
     Dates: start: 20120201
  2. PROLIA [Suspect]
     Indication: OSTEOPOROSIS POSTMENOPAUSAL
     Route: 058
     Dates: start: 2010, end: 20120705
  3. PREDNISONE [Suspect]
     Indication: RHEUMATOID ARTHRITIS
     Route: 048
  4. METHOTREXATE [Suspect]
     Indication: RHEUMATOID ARTHRITIS
     Dosage: 7.5 MG
     Route: 048
  5. NEXIUM [Concomitant]
  6. DIOVAN HCT [Concomitant]

REACTIONS (9)
  - Encephalopathy [Unknown]
  - Renal failure acute [Unknown]
  - Pneumonia [Recovered/Resolved]
  - Sepsis [Unknown]
  - Altered state of consciousness [Unknown]
  - Hypotension [Unknown]
  - Hyponatraemia [Unknown]
  - Dehydration [Unknown]
  - Anaemia [Unknown]
